FAERS Safety Report 8195780-6 (Version None)
Quarter: 2012Q1

REPORT INFORMATION
  Report Type: 
  Country: None (occurrence: None)
  Receive Date: 20120308
  Receipt Date: 20120305
  Transmission Date: 20120608
  Serious: Yes (Life-Threatening, Hospitalization, Other)
  Sender: FDA-Public Use
  Company Number: CA-PFIZER INC-2012049700

PATIENT
  Age: 38 Year
  Sex: Female
  Weight: 107 kg

DRUGS (7)
  1. MIRTAZAPINE [Concomitant]
     Indication: INSOMNIA
     Dosage: 15 MG, 1X/DAY AT BEDTIME
     Dates: start: 20111004
  2. LITHIUM [Concomitant]
     Dosage: 450 MG, 1X/DAY IN EVENING WITH 300MG IN MORNING
  3. SYNTHROID [Concomitant]
     Indication: HYPOTHYROIDISM
     Dosage: 112 UG, 1X/DAY
  4. PRISTIQ [Suspect]
     Indication: BIPOLAR I DISORDER
     Dosage: 50 MG, 1X/DAY
     Route: 048
     Dates: start: 20110301, end: 20111201
  5. PRISTIQ [Suspect]
     Dosage: 100 MG, 1X/DAY
     Route: 048
     Dates: start: 20111201, end: 20120110
  6. LITHIUM [Concomitant]
     Indication: BIPOLAR I DISORDER
     Dosage: 300 MG, 1X/DAY IN MORNING WITH 450MG IN EVENING
  7. ABILIFY [Concomitant]
     Indication: BIPOLAR DISORDER
     Dosage: 2 MG, 1X/DAY EVERY MORNING
     Dates: start: 20110701

REACTIONS (3)
  - DYSPHORIA [None]
  - HYPOMANIA [None]
  - DEPRESSION [None]
